FAERS Safety Report 8345710-9 (Version None)
Quarter: 2012Q2

REPORT INFORMATION
  Report Type: 
  Country: None (occurrence: None)
  Receive Date: 20120508
  Receipt Date: 20111201
  Transmission Date: 20120825
  Serious: Yes (Other)
  Sender: FDA-Public Use
  Company Number: PHHY2009CA58141

PATIENT
  Sex: Male

DRUGS (2)
  1. ZOMETA [Suspect]
     Dosage: 3.3 MG, EVERY 4 WEEKS
     Route: 042
     Dates: start: 20091203
  2. ZOMETA [Suspect]
     Indication: PROSTATE CANCER METASTATIC
     Dosage: 3.3 MG, QMO
     Route: 042
     Dates: start: 20091203

REACTIONS (10)
  - BLOOD CREATININE INCREASED [None]
  - BLOOD TESTOSTERONE DECREASED [None]
  - BLOOD ALKALINE PHOSPHATASE DECREASED [None]
  - RED BLOOD CELL COUNT DECREASED [None]
  - BLOOD UREA INCREASED [None]
  - HAEMATOCRIT DECREASED [None]
  - BLOOD POTASSIUM INCREASED [None]
  - GLOMERULAR FILTRATION RATE DECREASED [None]
  - BLOOD PRESSURE SYSTOLIC INCREASED [None]
  - HAEMOGLOBIN DECREASED [None]
